FAERS Safety Report 24238108 (Version 1)
Quarter: 2024Q3

REPORT INFORMATION
  Report Type: Spontaneous
  Country: US (occurrence: None)
  Receive Date: 20240821
  Receipt Date: 20240821
  Transmission Date: 20241016
  Serious: Yes (Hospitalization, Disabling, Other)
  Sender: Public
  Company Number: None

PATIENT
  Age: 56 Year
  Sex: Female
  Weight: 65.25 kg

DRUGS (16)
  1. METHOTREXATE [Suspect]
     Active Substance: METHOTREXATE
     Indication: Rheumatoid arthritis
     Dosage: 4 TABLETS PER WEEK ORAL
     Route: 048
     Dates: start: 20231003, end: 20240817
  2. insulin pump for lispro insulin [Concomitant]
  3. METHIMAZOLE [Concomitant]
     Active Substance: METHIMAZOLE
  4. PAROXETINE [Concomitant]
     Active Substance: PAROXETINE
  5. FOLIC ACID [Concomitant]
     Active Substance: FOLIC ACID
  6. ADALIMUMAB [Concomitant]
     Active Substance: ADALIMUMAB
  7. PRALUENT [Concomitant]
     Active Substance: ALIROCUMAB
  8. ASPIRIN [Concomitant]
     Active Substance: ASPIRIN
  9. ISOSORBIDE MONONITRATE [Concomitant]
     Active Substance: ISOSORBIDE MONONITRATE
  10. AMLODIPINE BESYLATE [Concomitant]
     Active Substance: AMLODIPINE BESYLATE
  11. LISINOPRIL [Concomitant]
     Active Substance: LISINOPRIL
  12. METOPROLOL SUCCINATE [Concomitant]
     Active Substance: METOPROLOL SUCCINATE
  13. FUROSEMIDE [Concomitant]
     Active Substance: FUROSEMIDE
  14. FAMOTIDINE [Concomitant]
     Active Substance: FAMOTIDINE
  15. BUDESONIDE [Concomitant]
     Active Substance: BUDESONIDE
  16. NITROGLYCERIN [Concomitant]
     Active Substance: NITROGLYCERIN

REACTIONS (4)
  - Bone pain [None]
  - Joint swelling [None]
  - Stress fracture [None]
  - Tibia fracture [None]

NARRATIVE: CASE EVENT DATE: 20240817
